FAERS Safety Report 6686572-5 (Version None)
Quarter: 2010Q2

REPORT INFORMATION
  Report Type: 
  Country: None (occurrence: None)
  Receive Date: 20100419
  Receipt Date: 20100414
  Transmission Date: 20101027
  Serious: Yes (Hospitalization)
  Sender: FDA-Public Use
  Company Number: FR-ROCHE-697393

PATIENT
  Age: 58 Year
  Sex: Female

DRUGS (4)
  1. CYMEVAN [Suspect]
     Indication: DRUG USE FOR UNKNOWN INDICATION
     Route: 042
     Dates: start: 20100211, end: 20100226
  2. NEXIUM [Suspect]
     Indication: DRUG USE FOR UNKNOWN INDICATION
     Route: 065
     Dates: start: 20100202, end: 20100225
  3. TRIFLUCAN [Suspect]
     Indication: DRUG USE FOR UNKNOWN INDICATION
     Dosage: DRUG: TRIFULCAN
     Route: 065
     Dates: start: 20100210, end: 20100217
  4. HEPARIN [Suspect]
     Indication: AORTIC VALVE REPLACEMENT
     Route: 042
     Dates: start: 20100202

REACTIONS (3)
  - HAEMATOMA [None]
  - HAEMORRHAGE [None]
  - THROMBOCYTOPENIA [None]
